FAERS Safety Report 15593277 (Version 1)
Quarter: 2018Q4

REPORT INFORMATION
  Report Type: Spontaneous
  Country: US (occurrence: US)
  Receive Date: 20181107
  Receipt Date: 20181107
  Transmission Date: 20190205
  Serious: Yes (Death)
  Sender: FDA-Public Use
  Company Number: None

PATIENT
  Age: 73 Year
  Sex: Male

DRUGS (1)
  1. DIGOXIN. [Suspect]
     Active Substance: DIGOXIN

REACTIONS (8)
  - Hypotension [None]
  - Lethargy [None]
  - Hypoxia [None]
  - Toxicity to various agents [None]
  - Hypoglycaemia [None]
  - Bradycardia [None]
  - Acute kidney injury [None]
  - Ventricular tachycardia [None]

NARRATIVE: CASE EVENT DATE: 20180809
